FAERS Safety Report 26012231 (Version 1)
Quarter: 2025Q4

REPORT INFORMATION
  Report Type: Spontaneous
  Country: US (occurrence: None)
  Receive Date: 20251107
  Receipt Date: 20251107
  Transmission Date: 20260118
  Serious: Yes (Hospitalization)
  Sender: FDA-CTU
  Company Number: None

PATIENT
  Age: 56 Year
  Sex: Female

DRUGS (2)
  1. AMBRISENTAN [Suspect]
     Active Substance: AMBRISENTAN
     Indication: Pulmonary hypertension
     Dosage: TAKE 1 TABLET BY MOUTH DAILY. START AFTER COMPLETING 5 MG DOSE FOR 4 WEEKS.?
     Route: 048
     Dates: start: 20250919
  2. AMBRISENTAN [Concomitant]
     Active Substance: AMBRISENTAN

REACTIONS (1)
  - Dialysis [None]

NARRATIVE: CASE EVENT DATE: 20251020
